FAERS Safety Report 12689835 (Version 4)
Quarter: 2017Q2

REPORT INFORMATION
  Report Type: Report from Study
  Country: CO (occurrence: CO)
  Receive Date: 20160826
  Receipt Date: 20170515
  Transmission Date: 20170830
  Serious: Yes (Other)
  Sender: FDA-Public Use
  Company Number: CO-AMGEN-COLSL2016109610

PATIENT
  Age: 69 Year
  Sex: Female

DRUGS (4)
  1. NPLATE [Suspect]
     Active Substance: ROMIPLOSTIM
     Dosage: 250 MUG, QWK
     Route: 058
     Dates: end: 20170306
  2. NPLATE [Suspect]
     Active Substance: ROMIPLOSTIM
     Dosage: 125 MUG, Q2WK
     Route: 058
  3. NPLATE [Suspect]
     Active Substance: ROMIPLOSTIM
     Dosage: 250 MUG, 2 TIMES/WK
     Route: 058
  4. NPLATE [Suspect]
     Active Substance: ROMIPLOSTIM
     Indication: IMMUNE THROMBOCYTOPENIC PURPURA
     Dosage: 210 MUG, QWK
     Route: 058
     Dates: start: 20160415, end: 20161006

REACTIONS (2)
  - Thrombocytosis [Recovering/Resolving]
  - Intentional product misuse [Not Recovered/Not Resolved]

NARRATIVE: CASE EVENT DATE: 20160808
